FAERS Safety Report 5223785-3 (Version None)
Quarter: 2007Q1

REPORT INFORMATION
  Report Type: 
  Country: None (occurrence: None)
  Receive Date: 20070130
  Receipt Date: 20070119
  Transmission Date: 20070707
  Serious: Yes (Hospitalization)
  Sender: FDA-Public Use
  Company Number: PHNU2007DE00471

PATIENT
  Age: 77 Year
  Sex: Male

DRUGS (2)
  1. ACLASTA [Suspect]
     Indication: OSTEOPOROSIS
     Dosage: 5 MG, ONCE/SINGLE
     Dates: start: 20061219, end: 20061219
  2. CALCIVIT D [Concomitant]
     Dosage: 1 DF, QD
     Route: 048

REACTIONS (5)
  - ABASIA [None]
  - CONDITION AGGRAVATED [None]
  - INFECTION [None]
  - UNRESPONSIVE TO STIMULI [None]
  - UPPER RESPIRATORY TRACT INFECTION [None]
